FAERS Safety Report 23915674 (Version 1)
Quarter: 2024Q2

REPORT INFORMATION
  Report Type: Other
  Country: BR (occurrence: None)
  Receive Date: 20240529
  Receipt Date: 20240529
  Transmission Date: 20240716
  Serious: Yes (Other)
  Sender: FDA-Public Use
  Company Number: BR-ROCHE-3567130

PATIENT
  Age: 71 Year
  Sex: Female
  Weight: 69 kg

DRUGS (4)
  1. ACTEMRA [Suspect]
     Active Substance: TOCILIZUMAB
     Indication: Rheumatoid arthritis
     Route: 065
  2. MAGNESIUM DIMALATE [Concomitant]
     Indication: Osteoporosis
  3. AMLODIPINE [Concomitant]
     Active Substance: AMLODIPINE BESYLATE
     Indication: Hypertension
  4. ENALAPRIL [Concomitant]
     Active Substance: ENALAPRIL
     Indication: Hypertension

REACTIONS (4)
  - Facial pain [Recovering/Resolving]
  - Ear pain [Recovered/Resolved]
  - Pain in extremity [Recovering/Resolving]
  - Deafness [Recovering/Resolving]
